FAERS Safety Report 10619938 (Version 2)
Quarter: 2014Q4

REPORT INFORMATION
  Report Type: Report from Study
  Country: CA (occurrence: CA)
  Receive Date: 20141202
  Receipt Date: 20141223
  Transmission Date: 20150529
  Serious: Yes (Other)
  Sender: FDA-Public Use
  Company Number: CA-ABBVIE-14K-028-1313838-00

PATIENT
  Age: 19 Year
  Sex: Female

DRUGS (3)
  1. NAPROSYN [Concomitant]
     Active Substance: NAPROXEN
     Dosage: TWICE TO THREE TIMES A DAY
     Route: 048
     Dates: start: 20140128
  2. NAPROSYN [Concomitant]
     Active Substance: NAPROXEN
     Indication: ANKYLOSING SPONDYLITIS
     Route: 048
  3. HUMIRA [Suspect]
     Active Substance: ADALIMUMAB
     Indication: ANKYLOSING SPONDYLITIS
     Route: 058
     Dates: start: 201404, end: 201407

REACTIONS (2)
  - Breast mass [Not Recovered/Not Resolved]
  - Adenoma benign [Unknown]

NARRATIVE: CASE EVENT DATE: 20140107
